FAERS Safety Report 15897975 (Version 3)
Quarter: 2019Q2

REPORT INFORMATION
  Report Type: Spontaneous
  Country: JP (occurrence: JP)
  Receive Date: 20190201
  Receipt Date: 20190523
  Transmission Date: 20190711
  Serious: Yes (Death, Hospitalization, Other)
  Sender: FDA-Public Use
  Company Number: JP-BRISTOL-MYERS SQUIBB COMPANY-BMS-2019-008881

PATIENT
  Age: 71 Year
  Sex: Male
  Weight: 47.8 kg

DRUGS (2)
  1. OPDIVO [Suspect]
     Active Substance: NIVOLUMAB
     Indication: PRODUCT USED FOR UNKNOWN INDICATION
     Dosage: 136 MILLIGRAM
     Route: 041
     Dates: start: 20170728, end: 20171025
  2. OPDIVO [Suspect]
     Active Substance: NIVOLUMAB
     Indication: METASTATIC RENAL CELL CARCINOMA
     Dosage: 143 MILLIGRAM
     Route: 041
     Dates: start: 20170602, end: 20170714

REACTIONS (12)
  - Vocal cord paralysis [Unknown]
  - Pain [Unknown]
  - Decreased appetite [Unknown]
  - Constipation [Recovered/Resolved]
  - Malaise [Recovered/Resolved]
  - Hypothyroidism [Unknown]
  - Taste disorder [Unknown]
  - Liver function test increased [Recovered/Resolved]
  - Malignant neoplasm progression [Fatal]
  - Oedema peripheral [Recovered/Resolved]
  - Anaemia [Unknown]
  - Protein urine [Unknown]

NARRATIVE: CASE EVENT DATE: 20170616
